FAERS Safety Report 17090808 (Version 1)
Quarter: 2019Q4

REPORT INFORMATION
  Report Type: Spontaneous
  Country: US (occurrence: US)
  Receive Date: 20191031
  Receipt Date: 20191031
  Transmission Date: 20200122
  Serious: No
  Sender: FDA-Public Use
  Company Number: None

PATIENT
  Sex: Female

DRUGS (2)
  1. STELARA [Suspect]
     Active Substance: USTEKINUMAB
     Indication: CROHN^S DISEASE
     Route: 058
     Dates: start: 201901, end: 201908
  2. STELARA [Suspect]
     Active Substance: USTEKINUMAB
     Indication: COLONIC FISTULA
     Route: 058
     Dates: start: 201901, end: 201908

REACTIONS (6)
  - Headache [None]
  - Tinnitus [None]
  - Amnesia [None]
  - Depression [None]
  - Feeling abnormal [None]
  - Anxiety [None]
